FAERS Safety Report 15657534 (Version 1)
Quarter: 2018Q4

REPORT INFORMATION
  Report Type: Spontaneous
  Country: US (occurrence: US)
  Receive Date: 20181126
  Receipt Date: 20181126
  Transmission Date: 20190205
  Serious: No
  Sender: FDA-Public Use
  Company Number: None

PATIENT
  Sex: Female

DRUGS (2)
  1. DIVALPROEX DELAYED RELEASE [Suspect]
     Active Substance: DIVALPROEX SODIUM
  2. DIVALPROEX ER [Suspect]
     Active Substance: DIVALPROEX SODIUM

REACTIONS (3)
  - Nausea [None]
  - Diarrhoea [None]
  - Headache [None]
